FAERS Safety Report 6441141-7 (Version None)
Quarter: 2009Q4

REPORT INFORMATION
  Report Type: 
  Country: None (occurrence: None)
  Receive Date: 20091116
  Receipt Date: 20091107
  Transmission Date: 20100525
  Serious: Yes (Death, Hospitalization)
  Sender: FDA-Public Use
  Company Number: ES-BAYER-200938561GPV

PATIENT
  Age: 61 Year
  Sex: Male

DRUGS (10)
  1. CAMPATH [Suspect]
     Indication: PROPHYLAXIS AGAINST GRAFT VERSUS HOST DISEASE
     Dosage: TOTAL DAILY DOSE: 20 MG
     Route: 042
     Dates: start: 20090326, end: 20090330
  2. FLUDARABINE [Suspect]
     Indication: PROPHYLAXIS AGAINST GRAFT VERSUS HOST DISEASE
     Dosage: DAYS -9 TO -5 PRE-TRANSPLANT
     Route: 065
  3. BUSULPHAN [Suspect]
     Indication: PROPHYLAXIS AGAINST GRAFT VERSUS HOST DISEASE
     Dosage: 10 DOSES
     Route: 065
  4. CYCLOSPORINE [Suspect]
     Indication: PROPHYLAXIS AGAINST GRAFT VERSUS HOST DISEASE
     Route: 042
  5. HIDREALACINA [Concomitant]
     Indication: CARDIAC FAILURE
     Route: 048
     Dates: end: 20091107
  6. NITROGLICERINA [Concomitant]
     Indication: CARDIAC FAILURE
     Route: 058
     Dates: end: 20091107
  7. FUROSEMIDA [Concomitant]
     Indication: OEDEMA
     Route: 048
     Dates: end: 20091107
  8. CARVEDILOL [Concomitant]
     Indication: HYPERTENSION
     Route: 048
     Dates: end: 20091107
  9. LOSARTAN POTASSIUM [Concomitant]
     Indication: CARDIAC FAILURE
     Route: 048
     Dates: end: 20091107
  10. COTRIM [Concomitant]
     Indication: INFECTION
     Route: 048
     Dates: end: 20091107

REACTIONS (3)
  - CEREBRAL HAEMORRHAGE [None]
  - IDIOPATHIC THROMBOCYTOPENIC PURPURA [None]
  - THROMBOCYTOPENIA [None]
